FAERS Safety Report 8348597-3 (Version None)
Quarter: 2012Q2

REPORT INFORMATION
  Report Type: 
  Country: None (occurrence: None)
  Receive Date: 20120510
  Receipt Date: 20120430
  Transmission Date: 20120825
  Serious: Yes (Hospitalization)
  Sender: FDA-Public Use
  Company Number: 2008BI021229

PATIENT
  Age: 55 Year
  Sex: Female

DRUGS (2)
  1. TYSABRI [Suspect]
     Indication: MULTIPLE SCLEROSIS
     Route: 042
     Dates: start: 20070608, end: 20090915
  2. TYSABRI [Suspect]
     Dates: start: 20100402

REACTIONS (4)
  - STAPHYLOCOCCAL INFECTION [None]
  - INFECTION [None]
  - ABSCESS [None]
  - CYSTITIS [None]
